FAERS Safety Report 7383418-7 (Version None)
Quarter: 2011Q1

REPORT INFORMATION
  Report Type: 
  Country: None (occurrence: None)
  Receive Date: 20110325
  Receipt Date: 20110325
  Transmission Date: 20110831
  Serious: Yes (Hospitalization)
  Sender: FDA-Public Use
  Company Number: None

PATIENT
  Sex: Male
  Weight: 80 kg

DRUGS (6)
  1. PENTOSTATIN [Suspect]
     Dosage: 8.1MG
  2. BACTRIM DS [Concomitant]
  3. ACYCLOVIR [Concomitant]
  4. PEGFILRASTIM [Concomitant]
  5. CYCLOPHOSPHAMIDE [Suspect]
     Dosage: 1212 MG
  6. RITUXIMAB (MOAB C2B8 ANTI CD20 CHIMERIC) [Suspect]
     Dosage: 758 MG

REACTIONS (10)
  - NIGHT SWEATS [None]
  - LUNG INFILTRATION [None]
  - COUGH [None]
  - WHITE BLOOD CELL COUNT DECREASED [None]
  - INFLUENZA A VIRUS TEST POSITIVE [None]
  - CHILLS [None]
  - DYSPNOEA [None]
  - BODY TEMPERATURE INCREASED [None]
  - FATIGUE [None]
  - NEUTROPHIL COUNT DECREASED [None]
